FAERS Safety Report 4496097-3 (Version None)
Quarter: 2004Q4

REPORT INFORMATION
  Report Type: 
  Country: None (occurrence: None)
  Receive Date: 20041108
  Receipt Date: 20041103
  Transmission Date: 20050328
  Serious: Yes (Death)
  Sender: FDA-Public Use
  Company Number: CH-MERCK-0411CHE00007

PATIENT
  Age: 64 Year
  Sex: Female

DRUGS (6)
  1. VIOXX [Suspect]
     Indication: CARPAL TUNNEL SYNDROME
     Route: 048
     Dates: start: 20000101, end: 20010101
  2. VIOXX [Suspect]
     Route: 048
     Dates: start: 20020101, end: 20021101
  3. ESTRADIOL AND NORETHINDRONE ACETATE [Concomitant]
     Route: 048
     Dates: end: 20021101
  4. CLOTRIMAZOLE [Concomitant]
     Route: 067
     Dates: start: 20021001
  5. ATENOLOL AND CHLORTHALIDONE [Concomitant]
     Route: 048
     Dates: end: 20001101
  6. DICLOFENAC EPOLAMINE [Concomitant]
     Route: 061
     Dates: start: 20021001, end: 20021101

REACTIONS (1)
  - MYOCARDIAL INFARCTION [None]
